FAERS Safety Report 8173860-9 (Version None)
Quarter: 2012Q1

REPORT INFORMATION
  Report Type: 
  Country: None (occurrence: None)
  Receive Date: 20120229
  Receipt Date: 20120215
  Transmission Date: 20120608
  Serious: Yes (Hospitalization)
  Sender: FDA-Public Use
  Company Number: US-ELI_LILLY_AND_COMPANY-US201202004660

PATIENT
  Age: 74 Year
  Sex: Male

DRUGS (2)
  1. CYMBALTA [Suspect]
     Dosage: 60 MG, BID
  2. CYMBALTA [Suspect]
     Dosage: 60 MG, QD

REACTIONS (3)
  - RIB FRACTURE [None]
  - FALL [None]
  - ORTHOSTATIC HYPOTENSION [None]
